FAERS Safety Report 11194512 (Version 2)
Quarter: 2015Q2

REPORT INFORMATION
  Report Type: Spontaneous
  Country: AU (occurrence: AU)
  Receive Date: 20150616
  Receipt Date: 20150630
  Transmission Date: 20150821
  Serious: Yes (Other)
  Sender: FDA-Public Use
  Company Number: PHHY2015AU070689

PATIENT
  Age: 66 Year
  Sex: Female

DRUGS (1)
  1. ACLASTA [Suspect]
     Active Substance: ZOLEDRONIC ACID
     Indication: LOWER LIMB FRACTURE
     Route: 042
     Dates: start: 20150430

REACTIONS (16)
  - Rheumatoid arthritis [Unknown]
  - Musculoskeletal pain [Unknown]
  - Arthropathy [Unknown]
  - Off label use [Unknown]
  - Pain in extremity [Unknown]
  - Weight bearing difficulty [Unknown]
  - Dyspnoea [Not Recovered/Not Resolved]
  - Hemiparesis [Unknown]
  - Diarrhoea [Recovered/Resolved]
  - Irritability [Not Recovered/Not Resolved]
  - Vomiting [Recovered/Resolved]
  - Arthralgia [Unknown]
  - Eye infection [Unknown]
  - Alopecia [Not Recovered/Not Resolved]
  - Pollakiuria [Not Recovered/Not Resolved]
  - Fatigue [Not Recovered/Not Resolved]

NARRATIVE: CASE EVENT DATE: 20150430
